FAERS Safety Report 4724605-3 (Version None)
Quarter: 2005Q3

REPORT INFORMATION
  Report Type: 
  Country: None (occurrence: None)
  Receive Date: 20050719
  Receipt Date: 20050719
  Transmission Date: 20060218
  Serious: Yes (Other)
  Sender: FDA-Public Use
  Company Number: None

PATIENT
  Sex: Female

DRUGS (14)
  1. EZETIMIBE  10 MG [Suspect]
     Indication: HYPERLIPIDAEMIA
     Dosage: 10 MG    DAILY   ORAL
     Route: 048
     Dates: start: 20041222, end: 20050404
  2. ASPIRIN [Concomitant]
  3. CALCIUM/VIT D [Concomitant]
  4. FLUNISOLIDE [Concomitant]
  5. FLUOXETINE [Concomitant]
  6. FORMOTEROL [Concomitant]
  7. MULTIVITAMINS WITH MINERALS [Concomitant]
  8. OMEPRAZOLE [Concomitant]
  9. PREMPRO [Concomitant]
  10. PROPOXYPHENE HCL AND ACETAMINOPHEN [Concomitant]
  11. PSYLLIUM [Concomitant]
  12. THEOPHYLLINE [Concomitant]
  13. TRAZOSONE [Concomitant]
  14. ZOLMITRIPTAN [Concomitant]

REACTIONS (1)
  - MYALGIA [None]
